FAERS Safety Report 6566354-5 (Version None)
Quarter: 2010Q1

REPORT INFORMATION
  Report Type: 
  Country: None (occurrence: None)
  Receive Date: 20100202
  Receipt Date: 20100121
  Transmission Date: 20100710
  Serious: Yes (Other)
  Sender: FDA-Public Use
  Company Number: US-ELI_LILLY_AND_COMPANY-US201001005108

PATIENT
  Sex: Female

DRUGS (19)
  1. FORTEO [Suspect]
     Indication: OSTEOPOROSIS
     Dosage: 20 UG, DAILY (1/D)
     Dates: start: 20090901
  2. SENNA [Concomitant]
  3. DULCOLAX [Concomitant]
  4. NEXIUM [Concomitant]
  5. BENICAR [Concomitant]
  6. BUMEX [Concomitant]
  7. POTASSIUM [Concomitant]
  8. LEXAPRO [Concomitant]
  9. DESYREL [Concomitant]
  10. ZANAFLEX [Concomitant]
  11. TRAMADOL HCL [Concomitant]
  12. TYLENOL                                 /SCH/ [Concomitant]
  13. CALCIUM [Concomitant]
  14. SYNTHROID [Concomitant]
  15. VITAMIN D3 [Concomitant]
  16. ADVAIR DISKUS 100/50 [Concomitant]
  17. GABAPENTIN [Concomitant]
  18. IPRATROPIUM BROMIDE [Concomitant]
  19. ALBUTEROL [Concomitant]

REACTIONS (4)
  - FOOT FRACTURE [None]
  - KNEE ARTHROPLASTY [None]
  - PAIN IN EXTREMITY [None]
  - STRESS FRACTURE [None]
